FAERS Safety Report 9771195 (Version 2)
Quarter: 2014Q2

REPORT INFORMATION
  Report Type: Spontaneous
  Country: US (occurrence: US)
  Receive Date: 20131218
  Receipt Date: 20140606
  Transmission Date: 20141212
  Serious: Yes (Hospitalization)
  Sender: FDA-Public Use
  Company Number: US-B.I. PHARMACEUTICALS,INC./RIDGEFIELD-2013-BI-41776BP

PATIENT
  Sex: Female
  Weight: 72.12 kg

DRUGS (25)
  1. PRADAXA [Suspect]
     Indication: ATRIAL FIBRILLATION
     Dosage: 300 MG
     Route: 048
     Dates: start: 20111228, end: 20120105
  2. TYLENOL [Concomitant]
     Dosage: 1950 MG
     Route: 065
  3. ALBUTEROL [Concomitant]
     Dosage: 8 PUF
     Route: 065
  4. ALPRAZOLAM [Concomitant]
     Dosage: 1 MG
     Route: 048
  5. AMIDARONE [Concomitant]
     Dosage: 400 MG
     Route: 048
  6. ASPIRIN [Concomitant]
     Dosage: 325 MG
     Route: 048
  7. LIPITOR [Concomitant]
     Dosage: 40 MG
     Route: 048
  8. BECLOMETHASONE [Concomitant]
     Dosage: 4 PUF
     Route: 048
  9. FERROUS GLUCONATE [Concomitant]
     Dosage: 324 MG
     Route: 048
  10. ADVAIR [Concomitant]
     Dosage: 2 PUF
     Route: 065
  11. FUROSEMIDE [Concomitant]
     Dosage: 40 MG
     Route: 048
  12. NARCO [Concomitant]
     Dosage: 10/325MG
     Route: 048
  13. ATROVENT [Concomitant]
     Dosage: 8 PUF
     Route: 065
  14. LEGATRIN [Concomitant]
     Route: 065
  15. LISINOPRIL [Concomitant]
     Dosage: 40 MG
     Route: 048
  16. MAGNESIUM CHLORIDE [Concomitant]
     Dosage: 192 MG
     Route: 065
  17. TOPROL XL [Concomitant]
     Dosage: 50 MG
     Route: 048
  18. MULTIVITAMIN [Concomitant]
     Dosage: 1 ANZ
     Route: 048
  19. OMEGA -3 FATTY ACID [Concomitant]
     Dosage: 4 G
     Route: 065
  20. POTASSIUM CHORIDE [Concomitant]
     Route: 048
  21. EFFIENT [Concomitant]
     Dosage: 10 MG
     Route: 048
  22. RANEXA [Concomitant]
     Dosage: 1000 MG
     Route: 048
  23. SERTRALINE [Concomitant]
     Route: 065
  24. SPIRIVA [Concomitant]
     Dosage: 8 PUF
     Route: 065
  25. TRIPLE MIX ORAL [Concomitant]
     Route: 065

REACTIONS (5)
  - Upper gastrointestinal haemorrhage [Unknown]
  - Lower gastrointestinal haemorrhage [Unknown]
  - Epistaxis [Unknown]
  - Haemorrhagic anaemia [Unknown]
  - Coagulopathy [Unknown]
